FAERS Safety Report 7052076-3 (Version None)
Quarter: 2010Q4

REPORT INFORMATION
  Report Type: 
  Country: None (occurrence: None)
  Receive Date: 20101019
  Receipt Date: 20101018
  Transmission Date: 20110411
  Serious: Yes (Death)
  Sender: FDA-Public Use
  Company Number: GB-JNJFOC-20080303625

PATIENT
  Age: 22 Year
  Sex: Male
  Weight: 50 kg

DRUGS (1)
  1. IBUPROFEN [Suspect]
     Indication: MUSCLE INJURY

REACTIONS (3)
  - BRAIN HERNIATION [None]
  - BRAIN OEDEMA [None]
  - HYPONATRAEMIC ENCEPHALOPATHY [None]
